FAERS Safety Report 9065755 (Version 2)
Quarter: 2013Q1

REPORT INFORMATION
  Report Type: Spontaneous
  Country: BE (occurrence: BE)
  Receive Date: 20130214
  Receipt Date: 20130322
  Transmission Date: 20140127
  Serious: Yes (Hospitalization, Other)
  Sender: FDA-Public Use
  Company Number: BE-JNJFOC-20130202165

PATIENT
  Age: 48 None
  Sex: Male

DRUGS (3)
  1. STELARA [Suspect]
     Indication: PSORIASIS
     Route: 058
     Dates: start: 20090618
  2. FELDENE [Concomitant]
     Indication: PRODUCT USED FOR UNKNOWN INDICATION
     Dosage: WHEN NEEDED
     Route: 048
  3. MOBIC [Concomitant]
     Indication: PRODUCT USED FOR UNKNOWN INDICATION
     Dosage: WHEN NEEDED
     Route: 048

REACTIONS (3)
  - Angina pectoris [Unknown]
  - Angina unstable [Recovered/Resolved]
  - Coronary artery occlusion [Recovered/Resolved]
